FAERS Safety Report 7180394-7 (Version None)
Quarter: 2010Q4

REPORT INFORMATION
  Report Type: 
  Country: None (occurrence: None)
  Receive Date: 20101221
  Receipt Date: 20101214
  Transmission Date: 20110411
  Serious: Yes (Other)
  Sender: FDA-Public Use
  Company Number: B0679042A

PATIENT
  Age: 47 Year
  Sex: Male

DRUGS (5)
  1. PAXIL [Suspect]
     Indication: BIPOLAR DISORDER
     Dosage: 20MG PER DAY
     Route: 048
     Dates: start: 20070101, end: 20101011
  2. PAXIL [Suspect]
     Dosage: 10MG PER DAY
     Route: 048
     Dates: start: 20101012, end: 20101030
  3. LIMAS [Suspect]
     Dosage: 200MG PER DAY
     Route: 048
  4. SOLANAX [Concomitant]
     Route: 048
     Dates: end: 20101030
  5. LENDORMIN [Concomitant]
     Route: 048
     Dates: end: 20101030

REACTIONS (2)
  - BUCCAL MUCOSAL ROUGHENING [None]
  - PUSTULAR PSORIASIS [None]
